FAERS Safety Report 9165556 (Version 1)
Quarter: 2013Q1

REPORT INFORMATION
  Report Type: Spontaneous
  Country: US (occurrence: US)
  Receive Date: 20130315
  Receipt Date: 20130315
  Transmission Date: 20140127
  Serious: No
  Sender: FDA-Public Use
  Company Number: US-GALDERMA-US13000054

PATIENT
  Sex: Male

DRUGS (3)
  1. TRI-LUMA [Suspect]
     Indication: SKIN DISCOLOURATION
     Route: 061
     Dates: start: 201103, end: 201103
  2. COPPERTONE [Suspect]
     Indication: PROPHYLAXIS AGAINST SOLAR RADIATION
     Route: 061
  3. ALOE VERA FOAMING WASH [Concomitant]
     Indication: THERAPEUTIC SKIN CARE TOPICAL
     Route: 061

REACTIONS (2)
  - Skin burning sensation [Recovered/Resolved]
  - Overdose [Recovered/Resolved]
